FAERS Safety Report 23318966 (Version 1)
Quarter: 2023Q4

REPORT INFORMATION
  Report Type: Spontaneous
  Country: JP (occurrence: JP)
  Receive Date: 20231220
  Receipt Date: 20231220
  Transmission Date: 20240110
  Serious: Yes (Other)
  Sender: FDA-Public Use
  Company Number: JP-BAYER-2023A166473

PATIENT
  Sex: Male

DRUGS (5)
  1. RIVAROXABAN [Suspect]
     Active Substance: RIVAROXABAN
     Indication: Thrombosis prophylaxis
     Route: 048
  2. RIVAROXABAN [Suspect]
     Active Substance: RIVAROXABAN
     Indication: Peripheral arterial occlusive disease
     Route: 048
  3. RIVAROXABAN [Suspect]
     Active Substance: RIVAROXABAN
     Indication: Peripheral revascularisation
     Route: 048
  4. ASPIRIN [Concomitant]
     Active Substance: ASPIRIN
     Route: 048
  5. EDOXABAN TOSYLATE [Concomitant]
     Active Substance: EDOXABAN TOSYLATE

REACTIONS (1)
  - Thrombosis [Unknown]
